FAERS Safety Report 4501149-5 (Version None)
Quarter: 2004Q4

REPORT INFORMATION
  Report Type: 
  Country: None (occurrence: None)
  Receive Date: 20041115
  Receipt Date: 20040928
  Transmission Date: 20050328
  Serious: Yes (Hospitalization)
  Sender: FDA-Public Use
  Company Number: PHHO2004JP13812

PATIENT
  Age: 47 Year
  Sex: Female
  Weight: 49 kg

DRUGS (8)
  1. SIMULECT [Suspect]
     Indication: RENAL TRANSPLANT
     Dosage: 20 MG, DAY 0
     Route: 042
     Dates: start: 20040316, end: 20040316
  2. SIMULECT [Suspect]
     Dosage: 20 MG, DAY 4
     Route: 042
     Dates: start: 20040320, end: 20040320
  3. NEORAL [Suspect]
     Indication: RENAL TRANSPLANT
     Dosage: 100-400 MG/DAILY
     Route: 048
     Dates: start: 20040320
  4. NEORAL [Suspect]
     Dosage: DECREASED DOSE
     Route: 048
     Dates: start: 20040501
  5. CELLCEPT [Suspect]
     Indication: RENAL TRANSPLANT
     Dosage: 150-500 MG/DAILY
     Route: 048
     Dates: start: 20040318
  6. STEROIDS NOS [Suspect]
     Indication: RENAL TRANSPLANT
     Dosage: 150-500 MG/DAILY
     Route: 042
     Dates: start: 20040316, end: 20040325
  7. STEROIDS NOS [Suspect]
     Dosage: 20 - 500 MG / DAY
     Route: 048
     Dates: start: 20040526
  8. SANDIMMUNE [Concomitant]
     Indication: RENAL TRANSPLANT
     Dosage: 40-1150 MG/DAILY
     Route: 042
     Dates: start: 20040316, end: 20040320

REACTIONS (6)
  - ADENOVIRUS INFECTION [None]
  - CYSTITIS HAEMORRHAGIC [None]
  - CYTOMEGALOVIRUS INFECTION [None]
  - HAEMATURIA [None]
  - PYREXIA [None]
  - RENAL HAEMATOMA [None]
